FAERS Safety Report 9871165 (Version 1)
Quarter: 2014Q1

REPORT INFORMATION
  Report Type: Spontaneous
  Country: US (occurrence: None)
  Receive Date: 20140204
  Receipt Date: 20140204
  Transmission Date: 20141002
  Serious: Yes (Death, Hospitalization)
  Sender: FDA-Public Use
  Company Number: None

PATIENT
  Age: 25 Year
  Sex: Male
  Weight: 79.4 kg

DRUGS (1)
  1. MEKINIST [Suspect]
     Indication: METASTATIC MALIGNANT MELANOMA
     Dosage: 1 TABLET QD ORAL
     Route: 048

REACTIONS (7)
  - Dyspnoea [None]
  - Cough [None]
  - Malaise [None]
  - Hypophagia [None]
  - Hypoxia [None]
  - Respiratory failure [None]
  - Lung infiltration [None]
